FAERS Safety Report 4705542-7 (Version None)
Quarter: 2005Q2

REPORT INFORMATION
  Report Type: 
  Country: None (occurrence: None)
  Receive Date: 20050629
  Receipt Date: 20050408
  Transmission Date: 20051028
  Serious: Yes (Hospitalization)
  Sender: FDA-Public Use
  Company Number: 200312049EU

PATIENT
  Age: 58 Year
  Sex: Male

DRUGS (7)
  1. CISPLATIN [Suspect]
     Indication: METASTATIC GASTRIC CANCER
     Dosage: 126 MG/DAY IV
     Route: 042
     Dates: start: 20020814, end: 20030519
  2. FLUOROURACIL [Suspect]
     Indication: METASTATIC GASTRIC CANCER
     Dosage: 7900 MG IV
     Route: 042
     Dates: start: 20020814, end: 20030519
  3. NEURONTIN [Concomitant]
  4. NEUROBION [Concomitant]
  5. OGASTO [Concomitant]
  6. NAPROSYN [Concomitant]
  7. FOILFER [Concomitant]

REACTIONS (3)
  - ABDOMINAL PAIN [None]
  - ANAEMIA [None]
  - GASTROINTESTINAL PAIN [None]
